FAERS Safety Report 8341167-2 (Version None)
Quarter: 2012Q2

REPORT INFORMATION
  Report Type: 
  Country: None (occurrence: None)
  Receive Date: 20120507
  Receipt Date: 20120501
  Transmission Date: 20120825
  Serious: No
  Sender: FDA-Public Use
  Company Number: US-PFIZER INC-2012091050

PATIENT
  Sex: Female

DRUGS (7)
  1. IBUPROFEN [Suspect]
     Dosage: UNK
  2. VICODIN [Suspect]
     Dosage: UNK
  3. ERGOCALCIFEROL [Suspect]
     Dosage: UNK
  4. DIHYDROTACHYSTEROL [Suspect]
     Dosage: UNK
  5. FIORICET [Suspect]
     Dosage: UNK
  6. OXYCODONE HCL [Suspect]
     Dosage: UNK
  7. ASPIRIN [Suspect]
     Dosage: UNK

REACTIONS (1)
  - DRUG HYPERSENSITIVITY [None]
